FAERS Safety Report 23226398 (Version 1)
Quarter: 2023Q4

REPORT INFORMATION
  Report Type: Spontaneous
  Country: CN (occurrence: CN)
  Receive Date: 20231124
  Receipt Date: 20231124
  Transmission Date: 20240109
  Serious: Yes (Hospitalization, Other)
  Sender: FDA-Public Use
  Company Number: CN-009507513-2311CHN008294

PATIENT
  Age: 31 Year
  Sex: Male
  Weight: 65 kg

DRUGS (3)
  1. CANCIDAS [Suspect]
     Active Substance: CASPOFUNGIN ACETATE
     Dosage: UNK
  2. CANCIDAS [Suspect]
     Active Substance: CASPOFUNGIN ACETATE
     Dosage: 50 MILLIGRAM, QD
     Route: 041
     Dates: start: 20231021, end: 20231021
  3. SODIUM CHLORIDE [Concomitant]
     Active Substance: SODIUM CHLORIDE
     Dosage: 0.9%, 250 MILLILITER, QD
     Route: 041
     Dates: start: 20231021, end: 20231021

REACTIONS (8)
  - Anaphylactic shock [Unknown]
  - Kaposi^s sarcoma [Unknown]
  - HIV infection [Unknown]
  - Left ventricular failure [Unknown]
  - Hypoalbuminaemia [Unknown]
  - Hospitalisation [Unknown]
  - Pneumonia [Unknown]
  - Incorrect dose administered [Unknown]

NARRATIVE: CASE EVENT DATE: 20231021
